FAERS Safety Report 10142602 (Version 1)
Quarter: 2014Q2

REPORT INFORMATION
  Report Type: Spontaneous
  Country: BR (occurrence: BR)
  Receive Date: 20140430
  Receipt Date: 20140430
  Transmission Date: 20141212
  Serious: Yes (Hospitalization)
  Sender: FDA-Public Use
  Company Number: BR-ASTRAZENECA-2014SE28703

PATIENT
  Age: 72 Year
  Sex: Female
  Weight: 68 kg

DRUGS (4)
  1. NEXIUM [Suspect]
     Indication: GASTRITIS
     Route: 048
     Dates: start: 2012, end: 201404
  2. NEXIUM [Suspect]
     Indication: ANTACID THERAPY
     Route: 048
     Dates: start: 2012, end: 201404
  3. NEXIUM [Suspect]
     Indication: GASTRITIS
     Route: 048
  4. NEXIUM [Suspect]
     Indication: ANTACID THERAPY
     Route: 048

REACTIONS (1)
  - Myocardial infarction [Recovered/Resolved]
